FAERS Safety Report 17170001 (Version 3)
Quarter: 2020Q2

REPORT INFORMATION
  Report Type: Spontaneous
  Country: US (occurrence: US)
  Receive Date: 20191218
  Receipt Date: 20200427
  Transmission Date: 20200713
  Serious: Yes (Hospitalization, Other)
  Sender: FDA-Public Use
  Company Number: US-PFIZER INC-2019544167

PATIENT
  Age: 56 Year
  Sex: Female
  Weight: 49.9 kg

DRUGS (1)
  1. PREMARIN [Suspect]
     Active Substance: ESTROGENS, CONJUGATED
     Dosage: UNK UNK, SINGLE (ONCE)
     Route: 067
     Dates: start: 20191213

REACTIONS (8)
  - Headache [Recovered/Resolved]
  - Drug hypersensitivity [Recovering/Resolving]
  - Throat irritation [Recovered/Resolved]
  - Abdominal pain lower [Recovered/Resolved]
  - Oropharyngeal discomfort [Recovering/Resolving]
  - Malaise [Recovered/Resolved]
  - Ear pruritus [Recovered/Resolved]
  - Pelvic pain [Recovered/Resolved]

NARRATIVE: CASE EVENT DATE: 20191213
